FAERS Safety Report 24606771 (Version 2)
Quarter: 2024Q4

REPORT INFORMATION
  Report Type: Report from Study
  Country: DE (occurrence: DE)
  Receive Date: 20241112
  Receipt Date: 20241210
  Transmission Date: 20250115
  Serious: Yes (Hospitalization)
  Sender: ABBVIE
  Company Number: DE-ABBVIE-5997191

PATIENT
  Age: 67 Year
  Sex: Male
  Weight: 107 kg

DRUGS (7)
  1. RISANKIZUMAB [Suspect]
     Active Substance: RISANKIZUMAB
     Indication: Crohn^s disease
     Route: 042
     Dates: start: 20240805, end: 20240805
  2. RISANKIZUMAB [Suspect]
     Active Substance: RISANKIZUMAB
     Indication: Crohn^s disease
     Route: 042
     Dates: start: 20240902, end: 20240902
  3. RISANKIZUMAB [Suspect]
     Active Substance: RISANKIZUMAB
     Indication: Crohn^s disease
     Route: 042
     Dates: start: 20240930, end: 20240930
  4. RAMIPRIL [Concomitant]
     Active Substance: RAMIPRIL
     Indication: Hypertension
     Route: 048
     Dates: start: 20221026
  5. ENTOCORT [Concomitant]
     Active Substance: BUDESONIDE
     Indication: Crohn^s disease
     Route: 048
     Dates: start: 20130627
  6. PREDNISOLONE [Concomitant]
     Active Substance: PREDNISOLONE
     Indication: Crohn^s disease
     Route: 048
     Dates: start: 20240812, end: 20240825
  7. PREDNISOLONE [Concomitant]
     Active Substance: PREDNISOLONE
     Indication: Crohn^s disease
     Route: 048
     Dates: start: 20240826, end: 20240902

REACTIONS (1)
  - Abdominal abscess [Recovered/Resolved]

NARRATIVE: CASE EVENT DATE: 20241031
